FAERS Safety Report 10085286 (Version 1)
Quarter: 2014Q2

REPORT INFORMATION
  Report Type: Spontaneous
  Country: US (occurrence: US)
  Receive Date: 20140417
  Receipt Date: 20140417
  Transmission Date: 20141212
  Serious: No
  Sender: FDA-Public Use
  Company Number: US-B.I. PHARMACEUTICALS,INC./RIDGEFIELD-2014-BI-15458BP

PATIENT
  Sex: Male

DRUGS (11)
  1. CATAPRES [Suspect]
     Indication: PRODUCT USED FOR UNKNOWN INDICATION
     Route: 065
  2. PRAVASTATIN SODIUM [Concomitant]
     Route: 048
  3. HYDROCHLOROTHIAZIDE (1 ORAL) [Concomitant]
     Route: 048
  4. DIGOXIN (1 ORAL) [Concomitant]
     Route: 048
  5. WARFARIN SODIUM (1 ORAL) [Concomitant]
     Route: 048
  6. HYDROCODONE- ACETAMINOPHEN [Concomitant]
     Route: 048
  7. LEVETIRACETAM [Concomitant]
     Route: 048
  8. AMIODARONE HCL (1 ORAL) [Concomitant]
     Route: 048
  9. LISINOPRIL (1 ORAL) [Concomitant]
     Route: 048
  10. LABETALOL HCL [Concomitant]
     Route: 065
  11. VIAGRA [Concomitant]
     Indication: ERECTILE DYSFUNCTION
     Route: 048

REACTIONS (1)
  - Drug hypersensitivity [Unknown]
